FAERS Safety Report 20561049 (Version 2)
Quarter: 2022Q1

REPORT INFORMATION
  Report Type: Spontaneous
  Country: US (occurrence: US)
  Receive Date: 20220307
  Receipt Date: 20220323
  Transmission Date: 20220423
  Serious: Yes (Other)
  Sender: FDA-Public Use
  Company Number: US-PFIZER INC-2021716157

PATIENT
  Age: 63 Year
  Sex: Female

DRUGS (2)
  1. XANAX [Suspect]
     Active Substance: ALPRAZOLAM
     Dosage: 1 MG
  2. XANAX [Suspect]
     Active Substance: ALPRAZOLAM
     Dosage: 6 MG, DAILY (QUANTITY 90 DAY SUPPLY 15)

REACTIONS (11)
  - Coeliac disease [Unknown]
  - Multiple fractures [Unknown]
  - Mental disorder [Unknown]
  - Stress [Unknown]
  - Illness [Unknown]
  - COVID-19 [Unknown]
  - Fall [Unknown]
  - Vomiting [Unknown]
  - Diarrhoea [Unknown]
  - Intentional product misuse [Unknown]
  - Prescribed overdose [Unknown]
